FAERS Safety Report 6269707-8 (Version None)
Quarter: 2009Q3

REPORT INFORMATION
  Report Type: 
  Country: None (occurrence: None)
  Receive Date: 20090716
  Receipt Date: 20090714
  Transmission Date: 20100115
  Serious: Yes (Life-Threatening)
  Sender: FDA-Public Use
  Company Number: US-B.I. PHARMACEUTICALS,INC./RIDGEFIELD-2009-BP-08381BP

PATIENT
  Age: 61 Year
  Sex: Female

DRUGS (7)
  1. SPIRIVA [Suspect]
  2. CELEBREX [Concomitant]
     Dates: start: 20010101
  3. VIOXX [Concomitant]
  4. LISINOPRIL [Concomitant]
  5. TAMOXIFEN CITRATE [Concomitant]
  6. LYRICA [Concomitant]
  7. CHANTIX [Concomitant]
     Dates: start: 20080101

REACTIONS (5)
  - BLOOD CHOLESTEROL INCREASED [None]
  - FIBROMYALGIA [None]
  - HYPERTENSION [None]
  - MIGRAINE [None]
  - MYOCARDIAL INFARCTION [None]
